FAERS Safety Report 14814143 (Version 3)
Quarter: 2018Q4

REPORT INFORMATION
  Report Type: Spontaneous
  Country: GR (occurrence: GR)
  Receive Date: 20180426
  Receipt Date: 20181112
  Transmission Date: 20190204
  Serious: Yes (Death, Hospitalization, Other)
  Sender: FDA-Public Use
  Company Number: GR-VALIDUS PHARMACEUTICALS LLC-GR-2018VAL000684

PATIENT
  Age: 76 Year
  Sex: Female

DRUGS (4)
  1. FUROSEMIDE. [Suspect]
     Active Substance: FUROSEMIDE
     Indication: PULMONARY OEDEMA
     Dosage: UNK, 8 PUSHES
     Route: 042
  2. METHOTREXATE. [Suspect]
     Active Substance: METHOTREXATE
     Indication: RHEUMATOID ARTHRITIS
     Dosage: UNK
     Route: 065
  3. CICLOSPORIN [Suspect]
     Active Substance: CYCLOSPORINE
     Indication: RHEUMATOID ARTHRITIS
     Dosage: UNK
     Route: 065
  4. PREDNISOLONE. [Suspect]
     Active Substance: PREDNISOLONE
     Indication: RHEUMATOID ARTHRITIS
     Dosage: 5 MG, QD
     Route: 065

REACTIONS (12)
  - Sepsis [Fatal]
  - Anuria [Fatal]
  - Chest pain [Fatal]
  - Bacteraemia [Fatal]
  - Dyspnoea [Fatal]
  - Haemolysis [Fatal]
  - Pain [Fatal]
  - Rales [Fatal]
  - Metabolic acidosis [Fatal]
  - Abdominal pain upper [Fatal]
  - Pyrexia [Fatal]
  - Abdominal tenderness [Fatal]
